FAERS Safety Report 4329220-1 (Version None)
Quarter: 2004Q1

REPORT INFORMATION
  Report Type: 
  Country: None (occurrence: None)
  Receive Date: 20040331
  Receipt Date: 20040331
  Transmission Date: 20041129
  Serious: Yes (Hospitalization)
  Sender: FDA-Public Use
  Company Number: None

PATIENT
  Age: 70 Year
  Sex: Female
  Weight: 58.9676 kg

DRUGS (2)
  1. PROCRIT 40,000 U/ML AMGEN INC [Suspect]
     Indication: ANAEMIA
     Dosage: 27,000U SQ QW
     Route: 058
     Dates: start: 20040305, end: 20040326
  2. PROCRIT 40,000 U/ML AMGEN INC [Suspect]
     Indication: CHEMOTHERAPY
     Dosage: 27,000U SQ QW
     Route: 058
     Dates: start: 20040305, end: 20040326

REACTIONS (3)
  - DEEP VEIN THROMBOSIS [None]
  - DIARRHOEA [None]
  - FAECAL OCCULT BLOOD POSITIVE [None]
